FAERS Safety Report 11238117 (Version 1)
Quarter: 2015Q3

REPORT INFORMATION
  Report Type: Spontaneous
  Country: FR (occurrence: FR)
  Receive Date: 20150703
  Receipt Date: 20150703
  Transmission Date: 20151125
  Serious: Yes (Hospitalization)
  Sender: FDA-Public Use
  Company Number: FR-MERCK-1506FRA013864

PATIENT
  Age: 74 Year
  Sex: Male

DRUGS (8)
  1. TIMOPTOL [Concomitant]
     Active Substance: TIMOLOL
  2. MODURETIC 5-50 [Concomitant]
     Active Substance: AMILORIDE HYDROCHLORIDE\HYDROCHLOROTHIAZIDE
  3. JANUVIA [Suspect]
     Active Substance: SITAGLIPTIN PHOSPHATE
     Dosage: UNK
     Route: 048
     Dates: end: 20140330
  4. OLMETEC [Concomitant]
     Active Substance: OLMESARTAN MEDOXOMIL
  5. ZOCOR [Suspect]
     Active Substance: SIMVASTATIN
     Dosage: 20 MG, QD
     Route: 048
     Dates: end: 20140330
  6. MOPRAL (OMEPRAZOLE) [Suspect]
     Active Substance: OMEPRAZOLE SODIUM
     Dosage: UNK
     Route: 048
     Dates: end: 20150330
  7. SOTALEX [Concomitant]
     Active Substance: SOTALOL
  8. FLECAINE [Concomitant]
     Active Substance: FLECAINIDE
     Dosage: PROLONGED-RELEASE CAPSULE

REACTIONS (1)
  - Nephritis allergic [Recovering/Resolving]

NARRATIVE: CASE EVENT DATE: 201403
